FAERS Safety Report 10756635 (Version 1)
Quarter: 2015Q1

REPORT INFORMATION
  Report Type: Spontaneous
  Country: US (occurrence: US)
  Receive Date: 20150202
  Receipt Date: 20150202
  Transmission Date: 20150721
  Serious: No
  Sender: FDA-Public Use
  Company Number: US-ELI_LILLY_AND_COMPANY-US201501002695

PATIENT
  Sex: Male

DRUGS (3)
  1. HUMALOG [Suspect]
     Active Substance: INSULIN LISPRO
     Indication: DIABETES MELLITUS
     Dosage: UNK UNK, TID
     Route: 065
  2. HUMALOG [Suspect]
     Active Substance: INSULIN LISPRO
     Dosage: UNK
     Route: 065
  3. PREDNISONE. [Concomitant]
     Active Substance: PREDNISONE
     Indication: LUNG INFECTION
     Dosage: UNK
     Route: 065

REACTIONS (3)
  - Lung infection [Recovering/Resolving]
  - Dysphonia [Unknown]
  - Underdose [Unknown]
